FAERS Safety Report 5030805-8 (Version None)
Quarter: 2006Q2

REPORT INFORMATION
  Report Type: 
  Country: None (occurrence: None)
  Receive Date: 20060614
  Receipt Date: 20060606
  Transmission Date: 20061013
  Serious: Yes (Other)
  Sender: FDA-Public Use
  Company Number: 000#8#2006-00244

PATIENT
  Age: 53 Year
  Sex: Male

DRUGS (1)
  1. ALPROSTADIL [Suspect]
     Dosage: 15 MCG
     Route: 017

REACTIONS (2)
  - PEYRONIE'S DISEASE [None]
  - SCAR [None]
